FAERS Safety Report 25925601 (Version 1)
Quarter: 2025Q4

REPORT INFORMATION
  Report Type: Spontaneous
  Country: CN (occurrence: CN)
  Receive Date: 20251015
  Receipt Date: 20251015
  Transmission Date: 20260117
  Serious: Yes (Other)
  Sender: PURDUE
  Company Number: CN-NAPPMUNDI-GBR-2025-0129624

PATIENT
  Age: 62 Year
  Sex: Male
  Weight: 55 kg

DRUGS (1)
  1. OXYCODONE HYDROCHLORIDE [Suspect]
     Active Substance: OXYCODONE HYDROCHLORIDE
     Indication: Tumour pain
     Dosage: 40 MILLIGRAM, Q12H
     Route: 048
     Dates: start: 20250920, end: 20250921

REACTIONS (3)
  - Constipation [Recovering/Resolving]
  - Abdominal distension [Recovering/Resolving]
  - Marasmus [Unknown]

NARRATIVE: CASE EVENT DATE: 20250901
